FAERS Safety Report 4661038-2 (Version None)
Quarter: 2005Q3

REPORT INFORMATION
  Report Type: 
  Country: None (occurrence: None)
  Receive Date: 20050511
  Receipt Date: 20050503
  Transmission Date: 20060218
  Serious: Yes (Hospitalization)
  Sender: FDA-Public Use
  Company Number: 050050

PATIENT
  Sex: Female

DRUGS (1)
  1. HALFLYTELY [Suspect]
     Indication: COLONOSCOPY

REACTIONS (4)
  - COLITIS [None]
  - POST PROCEDURAL HAEMORRHAGE [None]
  - PROCEDURAL PAIN [None]
  - WHITE BLOOD CELL COUNT INCREASED [None]
